FAERS Safety Report 4295090-3 (Version None)
Quarter: 2004Q1

REPORT INFORMATION
  Report Type: 
  Country: None (occurrence: None)
  Receive Date: 20040211
  Receipt Date: 20040204
  Transmission Date: 20041129
  Serious: Yes (Death, Hospitalization)
  Sender: FDA-Public Use
  Company Number: NSADSS2003001923

PATIENT
  Age: 76 Year
  Sex: Female

DRUGS (14)
  1. REMICADE [Suspect]
     Indication: RHEUMATOID ARTHRITIS
     Dosage: 1 IN 1 AS NECESSARY ,  INTRAVENOUS DRIP
     Route: 041
     Dates: start: 20000502, end: 20021201
  2. METHOTREXATE [Concomitant]
  3. PREDNISONE [Concomitant]
  4. FOLIC ACID [Concomitant]
  5. CALCIUM [Concomitant]
  6. LEVOXYL [Concomitant]
  7. ZOCOR [Concomitant]
  8. INSULIN [Concomitant]
  9. ACTOS [Concomitant]
  10. ISOSORBIDE [Concomitant]
  11. ACTONEL [Concomitant]
  12. ATACAND [Concomitant]
  13. ASPIRIN [Concomitant]
  14. LAXIS (FUROSEMIDE) [Concomitant]

REACTIONS (2)
  - CARDIAC FAILURE CONGESTIVE [None]
  - CORONARY ARTERY DISEASE [None]
